FAERS Safety Report 10418980 (Version 1)
Quarter: 2014Q2

REPORT INFORMATION
  Report Type: Report from Study
  Country: US (occurrence: None)
  Receive Date: 20140627
  Receipt Date: 20140627
  Transmission Date: 20141212
  Serious: No
  Sender: FDA-Public Use
  Company Number: CABO-14004339

PATIENT
  Age: 79 Year
  Sex: Male

DRUGS (1)
  1. COMETRIQ (CABOZANTINIB) CAPSULE [Suspect]
     Indication: NEUROENDOCRINE CARCINOMA OF THE SKIN
     Route: 048
     Dates: start: 20140402

REACTIONS (3)
  - Dry mouth [None]
  - Asthenia [None]
  - Off label use [None]
